FAERS Safety Report 8689028 (Version 2)
Quarter: 2013Q2

REPORT INFORMATION
  Report Type: Spontaneous
  Country: US (occurrence: US)
  Receive Date: 20120727
  Receipt Date: 20130521
  Transmission Date: 20140414
  Serious: No
  Sender: FDA-Public Use
  Company Number: US-ASTRAZENECA-2011SE73414

PATIENT
  Age: 59 Year
  Sex: Male

DRUGS (7)
  1. SEROQUEL XR [Suspect]
     Indication: BIPOLAR DISORDER
     Route: 048
  2. SEROQUEL XR [Suspect]
     Indication: BIPOLAR DISORDER
     Route: 048
  3. SEROQUEL XR [Suspect]
     Indication: BIPOLAR DISORDER
     Route: 048
  4. SEROQUEL XR [Suspect]
     Indication: BIPOLAR DISORDER
     Route: 048
  5. CRESTOR [Suspect]
     Route: 048
  6. LAMICTAL [Concomitant]
  7. ADDERALL [Concomitant]

REACTIONS (19)
  - Bipolar disorder [Unknown]
  - Malaise [Unknown]
  - Withdrawal syndrome [Unknown]
  - Panic reaction [Unknown]
  - Anger [Unknown]
  - Anxiety [Unknown]
  - Insomnia [Unknown]
  - Confusional state [Unknown]
  - Mental status changes [Unknown]
  - Emotional distress [Unknown]
  - Executive dysfunction [Unknown]
  - Memory impairment [Unknown]
  - Feeling abnormal [Unknown]
  - Visual impairment [None]
  - Sleep disorder [None]
  - Vomiting [Unknown]
  - Irritability [Unknown]
  - Fatigue [Unknown]
  - Drug dose omission [Unknown]
